FAERS Safety Report 7893540-4 (Version None)
Quarter: 2011Q4

REPORT INFORMATION
  Report Type: 
  Country: None (occurrence: None)
  Receive Date: 20111104
  Receipt Date: 20111026
  Transmission Date: 20120403
  Serious: Yes (Hospitalization, Other)
  Sender: FDA-Public Use
  Company Number: US-MERCK-1012USA01884

PATIENT
  Age: 72 Year
  Sex: Female
  Weight: 56 kg

DRUGS (3)
  1. SALUTENSIN [Concomitant]
     Indication: HYPERTENSION
     Route: 065
     Dates: start: 19900101
  2. FOSAMAX [Suspect]
     Indication: OSTEOPOROSIS
     Route: 048
     Dates: start: 20041018, end: 20070814
  3. PREMARIN [Concomitant]
     Indication: HORMONE THERAPY
     Route: 065
     Dates: start: 19620101, end: 20070101

REACTIONS (24)
  - PLEURAL EFFUSION [None]
  - FIBRIN D DIMER INCREASED [None]
  - PELVIC HAEMATOMA [None]
  - PUBIS FRACTURE [None]
  - ARTHROPOD BITE [None]
  - CHRONIC OBSTRUCTIVE PULMONARY DISEASE [None]
  - ATRIAL TACHYCARDIA [None]
  - ERYTHEMA [None]
  - DEHYDRATION [None]
  - FEMUR FRACTURE [None]
  - FALL [None]
  - VULVAL CANCER [None]
  - BARTHOLIN'S CYST [None]
  - DIZZINESS POSTURAL [None]
  - LIGAMENT SPRAIN [None]
  - HYPERTENSION [None]
  - SUPRAVENTRICULAR TACHYCARDIA [None]
  - ANGINA PECTORIS [None]
  - ATELECTASIS [None]
  - DYSPNOEA [None]
  - OEDEMA PERIPHERAL [None]
  - LEUKOCYTOSIS [None]
  - CARDIAC FAILURE CONGESTIVE [None]
  - VENTRICULAR DYSFUNCTION [None]
